FAERS Safety Report 8451779-3 (Version None)
Quarter: 2012Q2

REPORT INFORMATION
  Report Type: 
  Country: None (occurrence: None)
  Receive Date: 20120620
  Receipt Date: 20120322
  Transmission Date: 20120825
  Serious: No
  Sender: FDA-Public Use
  Company Number: US-VERTEX PHARMACEUTICALS INC.-AE-2012-003869

PATIENT
  Sex: Male
  Weight: 83.99 kg

DRUGS (7)
  1. INCIVEK [Suspect]
     Indication: HEPATITIS C
     Route: 048
     Dates: start: 20120316
  2. PEGASYS [Concomitant]
     Indication: HEPATITIS C
     Route: 058
     Dates: start: 20120316
  3. RIBAVIRIN [Concomitant]
     Indication: HEPATITIS C
     Route: 048
     Dates: start: 20120316
  4. LUNESTA [Concomitant]
     Route: 048
  5. MULTIVITAMIN [Concomitant]
     Route: 048
  6. HYDROCODONE BITARTRATE AND ACETAMINOPHEN [Concomitant]
     Indication: BACK PAIN
     Route: 048
  7. MILK THISTLE [Concomitant]
     Route: 048

REACTIONS (4)
  - DECREASED APPETITE [None]
  - RASH [None]
  - RECTAL HAEMORRHAGE [None]
  - PRURITUS GENERALISED [None]
